FAERS Safety Report 15987373 (Version 2)
Quarter: 2019Q2

REPORT INFORMATION
  Report Type: Spontaneous
  Country: CO (occurrence: CO)
  Receive Date: 20190220
  Receipt Date: 20190520
  Transmission Date: 20190711
  Serious: Yes (Other)
  Sender: FDA-Public Use
  Company Number: CO-PFIZER INC-2019070615

PATIENT
  Age: 15 Year
  Sex: Female

DRUGS (1)
  1. GENOTROPIN [Suspect]
     Active Substance: SOMATROPIN
     Dosage: UNK
     Dates: end: 2017

REACTIONS (2)
  - Papilloedema [Unknown]
  - Intracranial pressure increased [Unknown]
